FAERS Safety Report 9450089 (Version 3)
Quarter: 2016Q3

REPORT INFORMATION
  Report Type: Report from Study
  Country: US (occurrence: US)
  Receive Date: 20130809
  Receipt Date: 20160812
  Transmission Date: 20161109
  Serious: Yes (Other)
  Sender: FDA-Public Use
  Company Number: US-AMGEN-USASP2013018121

PATIENT
  Age: 55 Year
  Sex: Male

DRUGS (2)
  1. NPLATE [Suspect]
     Active Substance: ROMIPLOSTIM
     Dosage: 40 MUG, Q8WK
     Route: 065
  2. NPLATE [Suspect]
     Active Substance: ROMIPLOSTIM
     Indication: IMMUNE THROMBOCYTOPENIC PURPURA
     Dosage: 90 UNK, LYOPHILIZED VIAL
     Route: 065
     Dates: start: 201201

REACTIONS (17)
  - Fatigue [Unknown]
  - Vertigo [Recovered/Resolved]
  - Deafness [Recovered/Resolved]
  - Staphylococcal infection [Recovered/Resolved]
  - Immunosuppression [Unknown]
  - Dysstasia [Unknown]
  - Paraesthesia [Unknown]
  - Rhinorrhoea [Unknown]
  - Asthenia [Unknown]
  - Influenza [Recovering/Resolving]
  - White blood cell count decreased [Unknown]
  - Platelet count decreased [Unknown]
  - Productive cough [Recovering/Resolving]
  - Ear discomfort [Recovering/Resolving]
  - Skin lesion [Unknown]
  - Cough [Unknown]
  - Skin mass [Unknown]

NARRATIVE: CASE EVENT DATE: 201601
